FAERS Safety Report 20674065 (Version 8)
Quarter: 2025Q3

REPORT INFORMATION
  Report Type: Spontaneous
  Country: US (occurrence: US)
  Receive Date: 20220405
  Receipt Date: 20250708
  Transmission Date: 20251021
  Serious: Yes (Other)
  Sender: PFIZER
  Company Number: US-PFIZER INC-202200475602

PATIENT
  Age: 69 Year
  Sex: Female

DRUGS (4)
  1. IBRANCE [Suspect]
     Active Substance: PALBOCICLIB
     Indication: Breast cancer metastatic
  2. IBRANCE [Suspect]
     Active Substance: PALBOCICLIB
     Route: 048
  3. IBRANCE [Suspect]
     Active Substance: PALBOCICLIB
     Route: 048
  4. FULVESTRANT [Concomitant]
     Active Substance: FULVESTRANT
     Dosage: UNK, MONTHLY
     Dates: start: 2014

REACTIONS (11)
  - Infection [Recovered/Resolved]
  - Lower limb fracture [Unknown]
  - Foot fracture [Recovering/Resolving]
  - Hip arthroplasty [Recovering/Resolving]
  - White blood cell count decreased [Not Recovered/Not Resolved]
  - Panic reaction [Unknown]
  - Alopecia [Unknown]
  - COVID-19 [Recovering/Resolving]
  - Influenza [Unknown]
  - Off label use [Unknown]
  - Product dose omission in error [Unknown]

NARRATIVE: CASE EVENT DATE: 20180101
